FAERS Safety Report 7008642-4 (Version None)
Quarter: 2010Q3

REPORT INFORMATION
  Report Type: 
  Country: None (occurrence: None)
  Receive Date: 20100922
  Receipt Date: 20100909
  Transmission Date: 20110219
  Serious: Yes (Other)
  Sender: FDA-Public Use
  Company Number: US-ELI_LILLY_AND_COMPANY-US201009003727

PATIENT
  Sex: Female

DRUGS (9)
  1. CYMBALTA [Suspect]
     Indication: BIPOLAR DISORDER
     Dosage: 60 MG, DAILY (1/D)
  2. ABILIFY [Concomitant]
     Dosage: 2 MG, UNK
  3. KLONOPIN [Concomitant]
     Dosage: 0.5 MG, 2/D
  4. ANTIHYPERTENSIVES [Concomitant]
  5. HORMONES [Concomitant]
     Dosage: 2 MG, UNK
  6. GLYSET [Concomitant]
     Indication: DIABETES MELLITUS
     Dosage: 75 MG, EACH MORNING
  7. GLYSET [Concomitant]
     Dosage: 50 MG, DAILY (1/D)
  8. GLYSET [Concomitant]
     Dosage: 50 MG, EACH EVENING
  9. CHEMOTHERAPEUTICS [Concomitant]
     Indication: HEPATIC NEOPLASM MALIGNANT

REACTIONS (4)
  - CONFUSIONAL STATE [None]
  - DIZZINESS [None]
  - HEPATIC NEOPLASM MALIGNANT [None]
  - OFF LABEL USE [None]
